FAERS Safety Report 8545502-1 (Version None)
Quarter: 2012Q3

REPORT INFORMATION
  Report Type: 
  Country: None (occurrence: None)
  Receive Date: 20120727
  Receipt Date: 20111021
  Transmission Date: 20120928
  Serious: No
  Sender: FDA-Public Use
  Company Number: US-ASTRAZENECA-2011SE63808

PATIENT
  Age: 42 Year
  Sex: Male
  Weight: 93 kg

DRUGS (2)
  1. SEROQUEL [Suspect]
     Indication: DEPRESSION
     Route: 048
     Dates: end: 20111019
  2. SEROQUEL [Suspect]
     Indication: SLEEP DISORDER
     Route: 048
     Dates: end: 20111019

REACTIONS (7)
  - ANGER [None]
  - INSOMNIA [None]
  - GASTRIC DISORDER [None]
  - DRUG DOSE OMISSION [None]
  - APHAGIA [None]
  - OFF LABEL USE [None]
  - ANXIETY [None]
